FAERS Safety Report 9344389 (Version 2)
Quarter: 2013Q2

REPORT INFORMATION
  Report Type: Other
  Country: US (occurrence: US)
  Receive Date: 20130612
  Receipt Date: 20130628
  Transmission Date: 20140414
  Serious: Yes (Hospitalization, Other)
  Sender: FDA-Public Use
  Company Number: US-SHIRE-ALL1-2013-03737

PATIENT
  Age: 84 Year
  Sex: Female

DRUGS (1)
  1. VPRIV [Suspect]
     Indication: GAUCHER^S DISEASE
     Dosage: 3600 IU, 1X/2WKS
     Route: 041
     Dates: start: 20111006

REACTIONS (2)
  - Pneumonia [Recovering/Resolving]
  - Aortic valve disease [Unknown]
